FAERS Safety Report 12308334 (Version 2)
Quarter: 2016Q2

REPORT INFORMATION
  Report Type: Report from Study
  Country: BE (occurrence: BE)
  Receive Date: 20160426
  Receipt Date: 20160505
  Transmission Date: 20160815
  Serious: Yes (Other)
  Sender: FDA-Public Use
  Company Number: BE-BIOGEN-2016BI00228977

PATIENT
  Age: 53 Year
  Sex: Female

DRUGS (3)
  1. PLEGRIDY [Suspect]
     Active Substance: PEGINTERFERON BETA-1A
     Indication: MULTIPLE SCLEROSIS
     Route: 058
     Dates: start: 20151104
  2. HIRUDOID [Concomitant]
     Active Substance: GLYCOSAMINOGLYCANS
     Indication: PRODUCT USED FOR UNKNOWN INDICATION
     Route: 065
  3. MORPHINE PATCHES [Concomitant]
     Indication: PRODUCT USED FOR UNKNOWN INDICATION
     Route: 065

REACTIONS (8)
  - Cerebrovascular accident [Unknown]
  - Blood glucose abnormal [Unknown]
  - Injection site erythema [Recovered/Resolved]
  - Dizziness [Unknown]
  - Balance disorder [Unknown]
  - Injection site pain [Recovered/Resolved]
  - Atrial septal defect [Unknown]
  - Disorientation [Unknown]

NARRATIVE: CASE EVENT DATE: 201512
